FAERS Safety Report 11026802 (Version 2)
Quarter: 2015Q2

REPORT INFORMATION
  Report Type: Spontaneous
  Country: US (occurrence: US)
  Receive Date: 20150414
  Receipt Date: 20150525
  Transmission Date: 20150821
  Serious: Yes (Other)
  Sender: FDA-Public Use
  Company Number: US-JNJFOC-20121207414

PATIENT
  Sex: Female

DRUGS (1)
  1. NORGESTIMATE/ETHINYL ESTRADIOL [Suspect]
     Active Substance: ETHINYL ESTRADIOL\NORGESTIMATE
     Indication: CONTRACEPTION
     Dosage: 180/215/250 MCG OF NORGESTIMATE/ 25 MCG OF ETHINYL ESTRADIOL
     Route: 048

REACTIONS (2)
  - Pregnancy on oral contraceptive [Unknown]
  - Exposure during pregnancy [Unknown]
